FAERS Safety Report 25706557 (Version 2)
Quarter: 2025Q4

REPORT INFORMATION
  Report Type: Spontaneous
  Country: US (occurrence: US)
  Receive Date: 20250820
  Receipt Date: 20251120
  Transmission Date: 20260119
  Serious: No
  Sender: CATALYST PHARMA
  Company Number: US-CATALYST PHARMACEUTICALS-US-CATA-25-00882

PATIENT
  Age: 12 Year
  Sex: Male
  Weight: 28.5 kg

DRUGS (3)
  1. AGAMREE [Suspect]
     Active Substance: VAMOROLONE
     Indication: Duchenne muscular dystrophy
     Dosage: 4 ML (140 MG) DAILY
     Route: 048
     Dates: start: 20241115
  2. AGAMREE [Suspect]
     Active Substance: VAMOROLONE
     Dosage: DOSE INCREASED
     Route: 048
     Dates: start: 2025
  3. LISINOPRIL [Concomitant]
     Active Substance: LISINOPRIL
     Indication: Product used for unknown indication
     Dosage: 2.5 MG DAILY
     Route: 048
     Dates: start: 20220520

REACTIONS (2)
  - Appetite disorder [Not Recovered/Not Resolved]
  - Decreased appetite [Recovered/Resolved]

NARRATIVE: CASE EVENT DATE: 20250501
